FAERS Safety Report 9453295 (Version 2)
Quarter: 2013Q3

REPORT INFORMATION
  Report Type: Spontaneous
  Country: BR (occurrence: BR)
  Receive Date: 20130812
  Receipt Date: 20130905
  Transmission Date: 20140515
  Serious: Yes (Death, Hospitalization)
  Sender: FDA-Public Use
  Company Number: BR-ASTRAZENECA-2013SE61507

PATIENT
  Age: 993 Month
  Sex: Male
  Weight: 65 kg

DRUGS (3)
  1. SYMBICORT TURBUHALER [Suspect]
     Dosage: 320/9 MCG, TWO TIMES A DAY
     Route: 055
     Dates: start: 20130720
  2. CLOPIDOGREL BISULFATE [Concomitant]
     Indication: HAEMORRHAGIC STROKE
     Dates: start: 2009
  3. OTHER CONCOMITANT MEDICATIONS [Concomitant]

REACTIONS (3)
  - Acute respiratory failure [Fatal]
  - Pulmonary oedema [Fatal]
  - Dyspnoea [Not Recovered/Not Resolved]
